FAERS Safety Report 9678068 (Version 1)
Quarter: 2013Q4

REPORT INFORMATION
  Report Type: Spontaneous
  Country: FR (occurrence: FR)
  Receive Date: 20131108
  Receipt Date: 20131108
  Transmission Date: 20140711
  Serious: Yes (Hospitalization)
  Sender: FDA-Public Use
  Company Number: FR-SA-2013SA111774

PATIENT
  Age: 67 Year
  Sex: Male

DRUGS (2)
  1. RIFADINE [Suspect]
     Indication: ENDOCARDITIS
     Dosage: FREQ: WITHIN 2 DAYS
     Route: 042
     Dates: start: 20130912, end: 20130926
  2. CUBICIN [Suspect]
     Indication: ENDOCARDITIS
     Route: 065
     Dates: start: 20130912, end: 20130925

REACTIONS (1)
  - Subcutaneous haematoma [Recovered/Resolved]
